FAERS Safety Report 21025712 (Version 1)
Quarter: 2022Q2

REPORT INFORMATION
  Report Type: Spontaneous
  Country: US (occurrence: US)
  Receive Date: 20220630
  Receipt Date: 20220630
  Transmission Date: 20220721
  Serious: Yes (Death, Life-Threatening, Hospitalization, Other)
  Sender: FDA-Public Use
  Company Number: US-BRISTOL-MYERS SQUIBB COMPANY-2022-060315

PATIENT
  Age: 85 Year
  Sex: Female

DRUGS (1)
  1. POMALYST [Suspect]
     Active Substance: POMALIDOMIDE
     Indication: Plasma cell myeloma
     Route: 048
     Dates: start: 20220513, end: 20220520

REACTIONS (7)
  - Hypercalcaemia [Fatal]
  - Mental status changes [Fatal]
  - Pneumonia staphylococcal [Fatal]
  - Renal failure [Fatal]
  - Agitation [Unknown]
  - Oesophageal stenosis [Unknown]
  - Septic shock [Fatal]
